FAERS Safety Report 7685235-7 (Version None)
Quarter: 2011Q3

REPORT INFORMATION
  Report Type: 
  Country: None (occurrence: None)
  Receive Date: 20110816
  Receipt Date: 20110810
  Transmission Date: 20111222
  Serious: Yes (Hospitalization, Disabling, Other)
  Sender: FDA-Public Use
  Company Number: US-ELI_LILLY_AND_COMPANY-US201006002067

PATIENT
  Sex: Male
  Weight: 145.58 kg

DRUGS (14)
  1. ALPRAZOLAM [Concomitant]
  2. AMBIEN [Concomitant]
  3. TRICOR [Concomitant]
     Indication: BLOOD CHOLESTEROL
  4. STARLIX [Concomitant]
  5. SPIRIVA [Concomitant]
     Indication: CHRONIC OBSTRUCTIVE PULMONARY DISEASE
  6. LANTUS [Concomitant]
  7. DIOVAN [Concomitant]
     Indication: BLOOD PRESSURE INCREASED
  8. METOPROLOL TARTRATE [Concomitant]
     Indication: BLOOD PRESSURE INCREASED
  9. FUROSEMIDE [Concomitant]
     Indication: BLOOD PRESSURE INCREASED
  10. LISINOPRIL [Concomitant]
     Indication: BLOOD PRESSURE INCREASED
  11. BYETTA [Suspect]
     Dosage: UNK
     Dates: start: 20070424, end: 20080701
  12. AVANDAMET [Concomitant]
  13. LIPITOR [Concomitant]
  14. CELEBREX [Concomitant]
     Indication: ARTHRITIS

REACTIONS (5)
  - RENAL INJURY [None]
  - PANCREATITIS ACUTE [None]
  - OFF LABEL USE [None]
  - PANCREATIC INJURY [None]
  - INJURY [None]
